FAERS Safety Report 6663625-9 (Version None)
Quarter: 2010Q1

REPORT INFORMATION
  Report Type: 
  Country: None (occurrence: None)
  Receive Date: 20100331
  Receipt Date: 20100331
  Transmission Date: 20100710
  Serious: Yes (Hospitalization, Other)
  Sender: FDA-Public Use
  Company Number: None

PATIENT
  Age: 55 Year
  Sex: Male
  Weight: 84 kg

DRUGS (14)
  1. HEPARIN [Suspect]
     Indication: CARDIAC VALVE PROSTHESIS USER
     Dosage: 1000 UNITS/HR -15 MG/KG/HR- CONTINUOUS IV DRIP
     Route: 041
     Dates: start: 20100111, end: 20100111
  2. WARFARIN SODIUM [Suspect]
     Indication: CARDIAC VALVE PROSTHESIS USER
     Dosage: 2MG DAILY PO
     Route: 048
     Dates: start: 20051024, end: 20100111
  3. SIMVASTATIN [Concomitant]
  4. ACETAMINOPHEN AND HYDROCODONE BITARTRATE [Concomitant]
  5. REGULAR INSULIN [Concomitant]
  6. MORPHINE [Concomitant]
  7. METRONIDAZOLE [Concomitant]
  8. ONDANSETRON [Concomitant]
  9. TACROLIMUS [Concomitant]
  10. MYFORTIC [Concomitant]
  11. FERROUS SULFATE TAB [Concomitant]
  12. DOCUSATE SODIUM [Concomitant]
  13. FUROSEMIDE [Concomitant]
  14. NITROGLYCERIN [Concomitant]

REACTIONS (10)
  - CORONARY ARTERY BYPASS [None]
  - DYSPNOEA [None]
  - ECCHYMOSIS [None]
  - FACE OEDEMA [None]
  - HAEMATOMA [None]
  - HAEMOGLOBIN DECREASED [None]
  - OEDEMA PERIPHERAL [None]
  - ORTHOPNOEA [None]
  - PAIN IN EXTREMITY [None]
  - PERICARDIAL HAEMORRHAGE [None]
